FAERS Safety Report 11811550 (Version 4)
Quarter: 2015Q4

REPORT INFORMATION
  Report Type: Report from Study
  Country: BE (occurrence: BE)
  Receive Date: 20151208
  Receipt Date: 20151223
  Transmission Date: 20160305
  Serious: Yes (Death, Life-Threatening)
  Sender: FDA-Public Use
  Company Number: BE-ABBVIE-15P-013-1485824-00

PATIENT
  Sex: Female

DRUGS (16)
  1. DUODOPA [Suspect]
     Active Substance: CARBIDOPA\LEVODOPA
     Dosage: AM=3ML; CD=2.4ML/H DURING 16HRS; ED=2ML
     Route: 050
     Dates: start: 20151008, end: 20151016
  2. DUODOPA [Suspect]
     Active Substance: CARBIDOPA\LEVODOPA
     Dosage: AM=UNKNOWN; CD=2.4ML/H DURING 16HRS; ED=2ML
     Route: 050
     Dates: start: 20151016, end: 20151029
  3. IBUPROFEN. [Concomitant]
     Active Substance: IBUPROFEN
     Indication: PRODUCT USED FOR UNKNOWN INDICATION
  4. L-THYROXINE [Concomitant]
     Active Substance: LEVOTHYROXINE
     Indication: PRODUCT USED FOR UNKNOWN INDICATION
  5. DAFALGAN [Concomitant]
     Active Substance: ACETAMINOPHEN
     Indication: PRODUCT USED FOR UNKNOWN INDICATION
  6. DUODOPA [Suspect]
     Active Substance: CARBIDOPA\LEVODOPA
     Dosage: AM=3ML; CD=2.5ML/H FOR 16HRS; ED=2ML
     Route: 050
     Dates: start: 20151029, end: 20151108
  7. TRAZODON [Concomitant]
     Active Substance: TRAZODONE HYDROCHLORIDE
     Indication: PRODUCT USED FOR UNKNOWN INDICATION
  8. DUODOPA [Suspect]
     Active Substance: CARBIDOPA\LEVODOPA
     Dosage: AM=3ML; CD=2.5ML/H FOR 16HRS; ED=2ML; ND=1.8ML/H FOR 8HRS
     Route: 050
     Dates: start: 20151108, end: 20151123
  9. ALPRAZOLAM. [Concomitant]
     Active Substance: ALPRAZOLAM
     Indication: PRODUCT USED FOR UNKNOWN INDICATION
  10. LORAZEPAM. [Concomitant]
     Active Substance: LORAZEPAM
     Indication: PRODUCT USED FOR UNKNOWN INDICATION
  11. PROLOPA HBS [Concomitant]
     Active Substance: BENSERAZIDE\LEVODOPA
     Indication: PRODUCT USED FOR UNKNOWN INDICATION
     Dosage: FORM STRENGTH: 100MG/25MG; UNIT DOSE=2 CAPSULES
  12. DUODOPA [Suspect]
     Active Substance: CARBIDOPA\LEVODOPA
     Dosage: DOSES CONTINUOUSLY MONITORED AND ADAPTED.
     Route: 050
     Dates: start: 20140827, end: 20151008
  13. DUODOPA [Suspect]
     Active Substance: CARBIDOPA\LEVODOPA
     Dosage: AM=4.5ML; CD=2.5ML/H FOR 16HRS; ED=2ML; ND=1ML/H FOR 8HRS
     Route: 050
     Dates: start: 20151123
  14. RIVOTRIL [Concomitant]
     Active Substance: CLONAZEPAM
     Indication: PRODUCT USED FOR UNKNOWN INDICATION
  15. PROLOPA [Concomitant]
     Active Substance: BENSERAZIDE\LEVODOPA
     Indication: PRODUCT USED FOR UNKNOWN INDICATION
  16. DUODOPA [Suspect]
     Active Substance: CARBIDOPA\LEVODOPA
     Indication: PARKINSON^S DISEASE
     Dosage: AM=7.5ML; CD=2.3ML/H DURING 16HRS; ED=1.5ML
     Route: 050
     Dates: start: 20140825, end: 20150827

REACTIONS (10)
  - Depressed mood [Unknown]
  - Incontinence [Unknown]
  - Device dislocation [Recovered/Resolved]
  - Hallucination [Unknown]
  - Condition aggravated [Unknown]
  - Bronchitis [Unknown]
  - Decubitus ulcer [Unknown]
  - Aggression [Unknown]
  - General physical health deterioration [Fatal]
  - Hypokinesia [Unknown]
